FAERS Safety Report 9203083 (Version 1)
Quarter: 2013Q1

REPORT INFORMATION
  Report Type: Spontaneous
  Country: US (occurrence: None)
  Receive Date: 20120709
  Receipt Date: 20120709
  Transmission Date: 20140127
  Serious: Yes (Other)
  Sender: FDA-Public Use
  Company Number: PHHY2010US63835

PATIENT
  Age: 68 Year
  Sex: Female

DRUGS (1)
  1. GLEEVEC (IMATINIB) UNKNOWN [Suspect]
     Indication: CHRONIC MYELOID LEUKAEMIA
     Route: 048
     Dates: start: 20090112

REACTIONS (7)
  - Arrhythmia [None]
  - Tachycardia [None]
  - Hyperthyroidism [None]
  - Blood pressure abnormal [None]
  - Muscle spasms [None]
  - Palpitations [None]
  - Extrasystoles [None]
